FAERS Safety Report 18682578 (Version 1)
Quarter: 2020Q4

REPORT INFORMATION
  Report Type: Spontaneous
  Country: US (occurrence: US)
  Receive Date: 20201228
  Receipt Date: 20201228
  Transmission Date: 20210114
  Serious: Yes (Hospitalization)
  Sender: FDA-Public Use
  Company Number: None

PATIENT
  Age: 76 Year
  Sex: Male

DRUGS (1)
  1. ERTAPENEM (ERTAPENEM 1GM/VIL INJ) [Suspect]
     Active Substance: ERTAPENEM
     Indication: INFECTION
     Route: 042
     Dates: start: 20201124, end: 20201211

REACTIONS (9)
  - Dizziness [None]
  - Fall [None]
  - Dysarthria [None]
  - Balance disorder [None]
  - Hallucination [None]
  - Hallucination, visual [None]
  - Confusional state [None]
  - Neurotoxicity [None]
  - Hallucination, auditory [None]

NARRATIVE: CASE EVENT DATE: 20201211
